FAERS Safety Report 6577077-0 (Version None)
Quarter: 2010Q1

REPORT INFORMATION
  Report Type: 
  Country: None (occurrence: None)
  Receive Date: 20100210
  Receipt Date: 20100201
  Transmission Date: 20100710
  Serious: Yes (Other)
  Sender: FDA-Public Use
  Company Number: US-ABBOTT-10P-163-0623590-00

PATIENT
  Sex: Female
  Weight: 129.84 kg

DRUGS (8)
  1. NIASPAN [Suspect]
     Indication: DRUG USE FOR UNKNOWN INDICATION
     Route: 048
     Dates: start: 20100128, end: 20100129
  2. METFORMIN HCL [Concomitant]
     Indication: DIABETES MELLITUS
     Route: 048
     Dates: start: 20050101
  3. VICODIN [Concomitant]
     Indication: PAIN IN EXTREMITY
     Route: 048
  4. POTASSIUM [Concomitant]
     Indication: DRUG USE FOR UNKNOWN INDICATION
     Route: 048
  5. BUMETANIDE [Concomitant]
     Indication: DIURETIC THERAPY
     Route: 048
  6. SIMVASTATIN [Concomitant]
     Indication: DRUG USE FOR UNKNOWN INDICATION
     Route: 048
  7. GLIPIZIDE [Concomitant]
     Indication: DIABETES MELLITUS
     Route: 048
  8. METHIMAZOLE [Concomitant]
     Indication: THYROID DISORDER

REACTIONS (7)
  - CHOKING SENSATION [None]
  - DYSPNOEA [None]
  - FEELING HOT [None]
  - GENERALISED ERYTHEMA [None]
  - HYPERHIDROSIS [None]
  - PRURITUS [None]
  - TREMOR [None]
